FAERS Safety Report 23240742 (Version 1)
Quarter: 2023Q4

REPORT INFORMATION
  Report Type: Spontaneous
  Country: CN (occurrence: CN)
  Receive Date: 20231129
  Receipt Date: 20231129
  Transmission Date: 20240109
  Serious: Yes (Other)
  Sender: FDA-Public Use
  Company Number: None

PATIENT
  Age: 65 Year
  Sex: Male
  Weight: 54 kg

DRUGS (6)
  1. LIPIODOL [Suspect]
     Active Substance: ETHIODIZED OIL
     Indication: Bronchial artery embolisation
     Dosage: MIXTURE LIQUOR OF 20ML LIPIODOL, 10MG CIS-PLATINUM AND 30 MG PACLITAXEL LIPOSOME
     Route: 042
     Dates: start: 20231002, end: 20231002
  2. CISPLATIN [Suspect]
     Active Substance: CISPLATIN
     Indication: Bronchial artery embolisation
     Route: 040
     Dates: start: 20231002, end: 20231002
  3. CISPLATIN [Suspect]
     Active Substance: CISPLATIN
     Dosage: MIXTURE LIQUOR OF 20ML LIPIODOL, 10MG CIS-PLATINUM AND 30 MG PACLITAXEL LIPOSOME
     Route: 040
     Dates: start: 20231002, end: 20231002
  4. PACLITAXEL [Suspect]
     Active Substance: PACLITAXEL
     Indication: Bronchial artery embolisation
     Route: 040
     Dates: start: 20231002, end: 20231002
  5. PACLITAXEL [Suspect]
     Active Substance: PACLITAXEL
     Dosage: MIXTURE LIQUOR OF 20ML LIPIODOL, 10MG CIS-PLATINUM, AND 30 MG PACLITAXEL LIPOSOME
     Route: 040
     Dates: start: 20231002, end: 20231002
  6. ONDANSETRON [Concomitant]
     Active Substance: ONDANSETRON
     Indication: Product used for unknown indication
     Route: 040
     Dates: start: 20231002, end: 20231002

REACTIONS (4)
  - Contrast encephalopathy [Recovering/Resolving]
  - Overdose [Recovering/Resolving]
  - Product use in unapproved indication [Recovering/Resolving]
  - Product use issue [Recovering/Resolving]

NARRATIVE: CASE EVENT DATE: 20231002
